FAERS Safety Report 7594173-X (Version None)
Quarter: 2011Q3

REPORT INFORMATION
  Report Type: 
  Country: None (occurrence: None)
  Receive Date: 20110706
  Receipt Date: 20110622
  Transmission Date: 20111222
  Serious: Yes (Other)
  Sender: FDA-Public Use
  Company Number: PHHY2011BR55153

PATIENT

DRUGS (2)
  1. ZOMETA [Suspect]
  2. ZOLEDRONIC ACID [Suspect]
     Dosage: 5 MG/100 ML, UNK
     Route: 042

REACTIONS (1)
  - OSTEONECROSIS [None]
